FAERS Safety Report 12321165 (Version 1)
Quarter: 2016Q2

REPORT INFORMATION
  Report Type: Other
  Country: GB (occurrence: GB)
  Receive Date: 20160502
  Receipt Date: 20160502
  Transmission Date: 20160815
  Serious: Yes (Hospitalization)
  Sender: FDA-Public Use
  Company Number: GB-CIPLA LTD.-2016GB04422

PATIENT

DRUGS (7)
  1. WARFARIN [Suspect]
     Active Substance: WARFARIN
     Dosage: UNK, FORM: UNKNOWN
     Route: 065
  2. WARFARIN [Suspect]
     Active Substance: WARFARIN
     Dosage: UNK, FORM: UNKNOWN
     Route: 065
  3. WARFARIN [Suspect]
     Active Substance: WARFARIN
     Dosage: REDUCED DOSE, FORM: UNKNOWN
     Route: 065
  4. FABRAZYME [Suspect]
     Active Substance: AGALSIDASE BETA
     Dosage: 80 MG
     Route: 041
  5. FABRAZYME [Suspect]
     Active Substance: AGALSIDASE BETA
     Dosage: 80 MG
     Route: 041
  6. FABRAZYME [Suspect]
     Active Substance: AGALSIDASE BETA
     Dosage: REDUCED DOSE
     Route: 041
  7. FABRAZYME [Suspect]
     Active Substance: AGALSIDASE BETA
     Dosage: 80 MG
     Route: 041

REACTIONS (6)
  - Head injury [Unknown]
  - Amnesia [Unknown]
  - Wheezing [Unknown]
  - Fall [Unknown]
  - Malaise [Unknown]
  - Confusional state [Unknown]

NARRATIVE: CASE EVENT DATE: 20160321
